FAERS Safety Report 7077009-5 (Version None)
Quarter: 2010Q4

REPORT INFORMATION
  Report Type: 
  Country: None (occurrence: None)
  Receive Date: 20101101
  Receipt Date: 20101025
  Transmission Date: 20110411
  Serious: Yes (Life-Threatening, Other)
  Sender: FDA-Public Use
  Company Number: DE-GENZYME-POMP-1001171

PATIENT
  Sex: Female
  Weight: 7 kg

DRUGS (2)
  1. MYOZYME [Suspect]
     Indication: GLYCOGEN STORAGE DISEASE TYPE II
     Dosage: 150 MG, 1X/W
     Route: 042
     Dates: start: 20100505
  2. BETA BLOCKING AGENTS [Suspect]

REACTIONS (4)
  - BLOOD PRESSURE INCREASED [None]
  - HYPERTONIA [None]
  - OXYGEN SATURATION DECREASED [None]
  - TACHYCARDIA [None]
